FAERS Safety Report 18230317 (Version 1)
Quarter: 2020Q3

REPORT INFORMATION
  Report Type: Spontaneous
  Country: US (occurrence: US)
  Receive Date: 20200903
  Receipt Date: 20200903
  Transmission Date: 20201103
  Serious: Yes (Hospitalization)
  Sender: FDA-Public Use
  Company Number: US-FRESENIUS MEDICAL CARE RENAL THERAPIES GROUP-FMC-2009-001035

PATIENT
  Age: 73 Year
  Sex: Female
  Weight: 72 kg

DRUGS (12)
  1. DELFLEX WITH DEXTROSE 4.25% LOW MAGNESIUM LOW CALCIUM [Suspect]
     Active Substance: CALCIUM CHLORIDE\DEXTROSE\MAGNESIUM CHLORIDE\SODIUM CHLORIDE\SODIUM LACTATE
     Indication: END STAGE RENAL DISEASE
     Dosage: FILL VOLUME 2000 ML, 6 EXCHANGES, LAST FILL  500 ML, NO DAYTIME EXCHANGE, DWELL TIME 1.5 HOURS, SINC
     Route: 033
  2. ZOFRAN [Concomitant]
     Active Substance: ONDANSETRON HYDROCHLORIDE
  3. SENSIPAR [Concomitant]
     Active Substance: CINACALCET HYDROCHLORIDE
  4. NIFEDIPINE. [Concomitant]
     Active Substance: NIFEDIPINE
  5. VITAMIN D3 [Concomitant]
     Active Substance: CHOLECALCIFEROL
  6. SEVELAMER [Concomitant]
     Active Substance: SEVELAMER
  7. LABETALOL [Concomitant]
     Active Substance: LABETALOL\LABETALOL HYDROCHLORIDE
  8. CALCITRIOL. [Concomitant]
     Active Substance: CALCITRIOL
  9. LISINOPRIL. [Concomitant]
     Active Substance: LISINOPRIL
  10. DELFLEX WITH DEXTROSE 1.5% LOW MAGNESIUM LOW CALCIUM [Suspect]
     Active Substance: CALCIUM CHLORIDE\DEXTROSE\MAGNESIUM CHLORIDE\SODIUM CHLORIDE\SODIUM LACTATE
     Indication: END STAGE RENAL DISEASE
     Dosage: FILL VOLUME 2000 ML, 6 EXCHANGES, LAST FILL  500 ML, NO DAYTIME EXCHANGE, DWELL TIME 1.5 HOURS, SINC
     Route: 033
  11. DELFLEX WITH DEXTROSE 2.5% LOW MAGNESIUM LOW CALCIUM [Suspect]
     Active Substance: CALCIUM CHLORIDE\DEXTROSE\MAGNESIUM CHLORIDE\SODIUM CHLORIDE\SODIUM LACTATE
     Indication: END STAGE RENAL DISEASE
     Dosage: FILL VOLUME 2000 ML, 6 EXCHANGES, LAST FILL  500 ML, NO DAYTIME EXCHANGE, DWELL TIME 1.5 HOURS, SINC
     Route: 033
  12. LACTULOSE. [Concomitant]
     Active Substance: LACTULOSE

REACTIONS (1)
  - Respiratory arrest [Recovered/Resolved]
